FAERS Safety Report 13084208 (Version 1)
Quarter: 2017Q1

REPORT INFORMATION
  Report Type: Spontaneous
  Country: US (occurrence: US)
  Receive Date: 20170104
  Receipt Date: 20170104
  Transmission Date: 20170428
  Serious: Yes (Disabling)
  Sender: FDA-Public Use
  Company Number: None

PATIENT
  Age: 61 Year
  Sex: Female
  Weight: 56.7 kg

DRUGS (2)
  1. MOTRIN [Suspect]
     Active Substance: IBUPROFEN
     Indication: JOINT SWELLING
     Dosage: FREQUENCY - 1 A DAY FOR 2 DAYS
     Route: 048
     Dates: start: 20130920
  2. PEPCID [Concomitant]
     Active Substance: FAMOTIDINE

REACTIONS (3)
  - Gastrointestinal oedema [None]
  - Abdominal distension [None]
  - Gastrointestinal pain [None]

NARRATIVE: CASE EVENT DATE: 20130920
